FAERS Safety Report 4488464-9 (Version None)
Quarter: 2004Q4

REPORT INFORMATION
  Report Type: 
  Country: None (occurrence: None)
  Receive Date: 20041026
  Receipt Date: 20041018
  Transmission Date: 20050328
  Serious: Yes (Disabling, Other)
  Sender: FDA-Public Use
  Company Number: 2004239806US

PATIENT
  Sex: Male

DRUGS (1)
  1. CELEBREX [Suspect]
     Dosage: ORAL
     Route: 048
     Dates: start: 19980101, end: 20041006

REACTIONS (3)
  - CEREBROVASCULAR ACCIDENT [None]
  - LEG AMPUTATION [None]
  - MUSCLE CRAMP [None]
